FAERS Safety Report 8845411 (Version 3)
Quarter: 2014Q3

REPORT INFORMATION
  Report Type: Report from Study
  Country: US (occurrence: US)
  Receive Date: 20121017
  Receipt Date: 20140903
  Transmission Date: 20150326
  Serious: Yes (Death)
  Sender: FDA-Public Use
  Company Number: US-ROCHE-1127921

PATIENT
  Sex: Female

DRUGS (1)
  1. XELODA [Suspect]
     Active Substance: CAPECITABINE
     Indication: BREAST CANCER
     Dosage: SCHEDULE: 14 DAYS ON, 7 DAYS OFF.
     Route: 048
     Dates: start: 20100305, end: 201005

REACTIONS (1)
  - Malignant neoplasm progression [Fatal]
